APPROVED DRUG PRODUCT: CAMOQUIN HYDROCHLORIDE
Active Ingredient: AMODIAQUINE HYDROCHLORIDE
Strength: EQ 200MG BASE
Dosage Form/Route: TABLET;ORAL
Application: N006441 | Product #001
Applicant: PARKE DAVIS DIV WARNER LAMBERT CO
Approved: Approved Prior to Jan 1, 1982 | RLD: No | RS: No | Type: DISCN